FAERS Safety Report 7328205-0 (Version None)
Quarter: 2011Q1

REPORT INFORMATION
  Report Type: 
  Country: None (occurrence: None)
  Receive Date: 20110224
  Receipt Date: 20110224
  Transmission Date: 20110831
  Serious: Yes (Other)
  Sender: FDA-Public Use
  Company Number: None

PATIENT
  Age: 29 Year
  Sex: Female
  Weight: 61.2356 kg

DRUGS (3)
  1. BCP (LOW - OGESTREL [Concomitant]
  2. FOLIC ACID [Concomitant]
  3. TOPIRAMATE [Suspect]
     Indication: EPILEPSY
     Dosage: 100 MG QHS PO
     Route: 048

REACTIONS (2)
  - PRODUCT SUBSTITUTION ISSUE [None]
  - NIGHT SWEATS [None]
